FAERS Safety Report 25439492 (Version 1)
Quarter: 2025Q2

REPORT INFORMATION
  Report Type: Spontaneous
  Country: FR (occurrence: FR)
  Receive Date: 20250616
  Receipt Date: 20250616
  Transmission Date: 20250716
  Serious: Yes (Other)
  Sender: ANI
  Company Number: FR-ANIPHARMA-2025-FR-000088

PATIENT
  Age: 63 Year
  Sex: Female

DRUGS (6)
  1. ANASTROZOLE [Suspect]
     Active Substance: ANASTROZOLE
     Indication: Breast cancer
     Route: 048
     Dates: start: 20230731, end: 20240118
  2. EXEMESTANE [Suspect]
     Active Substance: EXEMESTANE
     Route: 048
     Dates: start: 20240119
  3. LETROZOLE [Suspect]
     Active Substance: LETROZOLE
     Dates: start: 20230209, end: 20230730
  4. LEVOTHYROXINE [Suspect]
     Active Substance: LEVOTHYROXINE
  5. METFORMIN [Suspect]
     Active Substance: METFORMIN HYDROCHLORIDE
  6. LIPTRUZET [Suspect]
     Active Substance: ATORVASTATIN CALCIUM\EZETIMIBE

REACTIONS (2)
  - Tooth extraction [Unknown]
  - Gingival recession [Unknown]

NARRATIVE: CASE EVENT DATE: 20240615
